FAERS Safety Report 7977489-4 (Version None)
Quarter: 2011Q4

REPORT INFORMATION
  Report Type: 
  Country: None (occurrence: None)
  Receive Date: 20111214
  Receipt Date: 20111118
  Transmission Date: 20120403
  Serious: No
  Sender: FDA-Public Use
  Company Number: US-AMGEN-USASP2011061070

PATIENT
  Sex: Female

DRUGS (1)
  1. ENBREL [Suspect]
     Indication: RHEUMATOID ARTHRITIS
     Dosage: 50 MG, QWK
     Dates: start: 20110713

REACTIONS (4)
  - TENSION HEADACHE [None]
  - DRUG INEFFECTIVE [None]
  - OROPHARYNGEAL PAIN [None]
  - OROPHARYNGEAL SPASM [None]
